FAERS Safety Report 14123927 (Version 1)
Quarter: 2017Q4

REPORT INFORMATION
  Report Type: Spontaneous
  Country: RU (occurrence: RU)
  Receive Date: 20171025
  Receipt Date: 20171025
  Transmission Date: 20180321
  Serious: Yes (Hospitalization, Other)
  Sender: FDA-Public Use
  Company Number: RU-ASTRAZENECA-2017SF07693

PATIENT
  Age: 61 Year
  Sex: Female
  Weight: 60 kg

DRUGS (8)
  1. BRILINTA [Suspect]
     Active Substance: TICAGRELOR
     Indication: MYOCARDIAL INFARCTION
     Route: 048
     Dates: start: 201702
  2. ASPIRIN. [Concomitant]
     Active Substance: ASPIRIN
  3. NOLPAZA [Concomitant]
     Active Substance: PANTOPRAZOLE SODIUM
  4. VALSARTAN. [Concomitant]
     Active Substance: VALSARTAN
  5. CORAXAN (IVABRADINE HYDROCHLORIDE) [Concomitant]
     Active Substance: IVABRADINE HYDROCHLORIDE
  6. VEROSPIRON [Concomitant]
     Active Substance: SPIRONOLACTONE
  7. DIUVER [Concomitant]
     Active Substance: TORSEMIDE
  8. ATORIS [Concomitant]
     Active Substance: ATORVASTATIN CALCIUM

REACTIONS (1)
  - Device occlusion [Not Recovered/Not Resolved]

NARRATIVE: CASE EVENT DATE: 20171013
